FAERS Safety Report 9984935 (Version 1)
Quarter: 2014Q1

REPORT INFORMATION
  Report Type: Report from Study
  Country: US (occurrence: US)
  Receive Date: 20140307
  Receipt Date: 20140307
  Transmission Date: 20141002
  Serious: No
  Sender: FDA-Public Use
  Company Number: US-ABBVIE-14P-163-1186211-00

PATIENT
  Age: 85 Year
  Sex: Female

DRUGS (17)
  1. HUMIRA [Suspect]
     Indication: PSORIASIS
     Dates: start: 20131121, end: 20131230
  2. COUMADIN [Concomitant]
     Indication: ATRIAL FIBRILLATION
     Dosage: EVERY THURSDAY AND SUNDAY
  3. COUMADIN [Concomitant]
     Dosage: THE OTHER DAYS OF THE WEEK
  4. LOSARTAN [Concomitant]
     Indication: HYPERTENSION
  5. MULTAQ [Concomitant]
     Indication: CARDIAC DISORDER
  6. KLOR CON [Concomitant]
     Indication: PRODUCT USED FOR UNKNOWN INDICATION
  7. TOPROL [Concomitant]
     Indication: HYPERTENSION
     Dosage: EVERY NIGHT
  8. NORVASC [Concomitant]
     Indication: HYPERTENSION
     Dosage: EVERY NIGHT
  9. ALLOPURINOL [Concomitant]
     Indication: GOUT
  10. CRESTOR [Concomitant]
     Indication: BLOOD CHOLESTEROL INCREASED
  11. ZANTAC [Concomitant]
     Indication: GASTRIC DISORDER
  12. B 12 [Concomitant]
     Indication: PRODUCT USED FOR UNKNOWN INDICATION
  13. MIRALAX [Concomitant]
     Indication: CONSTIPATION
  14. CALCIUM [Concomitant]
     Indication: VITAMIN SUPPLEMENTATION
  15. PREDNISONE [Concomitant]
     Indication: VITAMIN SUPPLEMENTATION
     Dosage: X THREE DAYS
  16. PREDNISONE [Concomitant]
     Dosage: X FOUR DAYS
  17. HCTZ [Concomitant]
     Indication: PRODUCT USED FOR UNKNOWN INDICATION

REACTIONS (4)
  - Local swelling [Not Recovered/Not Resolved]
  - Skin exfoliation [Not Recovered/Not Resolved]
  - Pruritus [Not Recovered/Not Resolved]
  - Hypertension [Not Recovered/Not Resolved]
